FAERS Safety Report 8402018-0 (Version None)
Quarter: 2012Q2

REPORT INFORMATION
  Report Type: 
  Country: None (occurrence: None)
  Receive Date: 20120601
  Receipt Date: 20120529
  Transmission Date: 20120825
  Serious: Yes (Other)
  Sender: FDA-Public Use
  Company Number: US-PFIZER INC-2012129058

PATIENT
  Sex: Female
  Weight: 77.098 kg

DRUGS (7)
  1. GLIPIZIDE [Concomitant]
     Indication: DIABETES MELLITUS
     Dosage: 10 MG, 2X/DAY
  2. INSULIN [Concomitant]
     Indication: DIABETES MELLITUS
     Dosage: UNK, DAILY
  3. NEURONTIN [Suspect]
     Dosage: UNK
  4. PRAVASTATIN [Concomitant]
     Indication: BLOOD CHOLESTEROL INCREASED
     Dosage: 40 MG, DAILY
  5. NEURONTIN [Suspect]
     Dosage: 300MG IN THE MORNING AND 600MG IN THE EVENING
  6. METOPROLOL [Concomitant]
     Indication: HYPERTENSION
     Dosage: 50 MG, 2X/DAY
  7. NEURONTIN [Suspect]
     Indication: NEUROPATHY PERIPHERAL
     Dosage: 300 MG, DAILY
     Dates: start: 20110401

REACTIONS (6)
  - MYOCARDIAL INFARCTION [None]
  - CORONARY ARTERY OCCLUSION [None]
  - GAIT DISTURBANCE [None]
  - NEUROPATHY PERIPHERAL [None]
  - WEIGHT INCREASED [None]
  - INVESTIGATION ABNORMAL [None]
